FAERS Safety Report 8852744 (Version 3)
Quarter: 2014Q2

REPORT INFORMATION
  Report Type: Spontaneous
  Country: US (occurrence: US)
  Receive Date: 20121022
  Receipt Date: 20140404
  Transmission Date: 20141212
  Serious: Yes (Disabling)
  Sender: FDA-Public Use
  Company Number: US-ASTRAZENECA-2012SE78949

PATIENT
  Age: 46 Year
  Sex: Female

DRUGS (1)
  1. NEXIUM [Suspect]
     Indication: GASTROOESOPHAGEAL REFLUX DISEASE
     Route: 048

REACTIONS (5)
  - Chronic obstructive pulmonary disease [Unknown]
  - Adverse event [Unknown]
  - Dyspepsia [Unknown]
  - Aphagia [Unknown]
  - Drug dose omission [Unknown]
